FAERS Safety Report 11703037 (Version 1)
Quarter: 2015Q4

REPORT INFORMATION
  Report Type: Spontaneous
  Country: CA (occurrence: CA)
  Receive Date: 20151105
  Receipt Date: 20151105
  Transmission Date: 20160304
  Serious: Yes (Other)
  Sender: FDA-Public Use
  Company Number: CHPA2015CA013056

PATIENT
  Sex: Male

DRUGS (1)
  1. THRIVE 2 MG [Suspect]
     Active Substance: NICOTINE
     Indication: SMOKING CESSATION THERAPY
     Dosage: MORE THAN 30 DF PER DAY
     Route: 048

REACTIONS (2)
  - Incorrect dose administered [Unknown]
  - Drug dependence [Unknown]
